FAERS Safety Report 15852251 (Version 3)
Quarter: 2019Q1

REPORT INFORMATION
  Report Type: Report from Study
  Country: US (occurrence: US)
  Receive Date: 20190122
  Receipt Date: 20190125
  Transmission Date: 20190417
  Serious: Yes (Hospitalization, Other)
  Sender: FDA-Public Use
  Company Number: US-ROCHE-2092751

PATIENT
  Sex: Male
  Weight: 19.6 kg

DRUGS (22)
  1. SENNA [Concomitant]
     Active Substance: SENNA LEAF\SENNOSIDES\SENNOSIDES A AND B
     Dosage: 176MG/5 ML 1.25 ML BID AS NEEDED
     Route: 065
  2. CEFTIN [Concomitant]
     Active Substance: CEFUROXIME AXETIL
     Route: 065
  3. NUTROPIN AQ [Suspect]
     Active Substance: SOMATROPIN
     Route: 058
  4. SENNA [Concomitant]
     Active Substance: SENNA LEAF\SENNOSIDES\SENNOSIDES A AND B
     Route: 065
  5. HYDROCHLOROTHIAZIDE. [Concomitant]
     Active Substance: HYDROCHLOROTHIAZIDE
     Route: 048
  6. NUTROPIN AQ [Suspect]
     Active Substance: SOMATROPIN
     Dosage: ON GOING:YES, NUSPIN 5, 0.05 MG DOSING INCREMENTS, 7 INJECTIONS PER WEEK, DISPENSED 3 MONTH SUPPLY A
     Route: 058
  7. CYPROHEPTADINE. [Concomitant]
     Active Substance: CYPROHEPTADINE
     Dosage: TWICE A DAY MONDAY THROUGH FRIDAY
     Route: 065
  8. MILK OF MAGNESIA [Concomitant]
     Active Substance: MAGNESIUM HYDROXIDE
     Indication: CONSTIPATION
     Dosage: 400MG/ 5 ML SUSP 2 TIMES A DAY
     Route: 065
  9. CARNITOR [Concomitant]
     Active Substance: LEVOCARNITINE
     Dosage: 1GM/10 ML SOL 2.5 ML TWICE PER DAY
     Route: 065
  10. EAS [Concomitant]
     Dosage: 0.7 ML BEFORE MEALS
     Route: 065
  11. LEVOTHYROXINE. [Concomitant]
     Active Substance: LEVOTHYROXINE
     Route: 048
  12. ZYRTEC [Concomitant]
     Active Substance: CETIRIZINE HYDROCHLORIDE
     Dosage: 1MG DAILY VAI NEB
     Route: 048
  13. DDAVP [Concomitant]
     Active Substance: DESMOPRESSIN ACETATE
     Route: 048
  14. POTASSIUM CHLORIDE WITH DEXTROSE 5% IN SALINE [Concomitant]
     Dosage: 10% 20 MEQ/15 ML BID
     Route: 042
  15. NUTROPIN AQ [Suspect]
     Active Substance: SOMATROPIN
     Indication: HYPOPITUITARISM
     Dosage: AT BEDTIME
     Route: 058
  16. NUTROPIN AQ [Suspect]
     Active Substance: SOMATROPIN
     Dosage: AT BEDTIME
     Route: 058
     Dates: start: 20131120
  17. DDAVP [Concomitant]
     Active Substance: DESMOPRESSIN ACETATE
     Route: 048
  18. MILK OF MAGNESIA [Concomitant]
     Active Substance: MAGNESIUM HYDROXIDE
     Route: 065
  19. DUONEB [Concomitant]
     Active Substance: ALBUTEROL SULFATE\IPRATROPIUM BROMIDE
     Indication: WHEEZING
     Dosage: AMPULE EVERY 4 HRS AS NEEDED
     Route: 065
  20. PULMICORT TURBUHALER [Concomitant]
     Active Substance: BUDESONIDE
     Dosage: 1MG/2ML SUSP 1MG DAILY VIA NEB
     Route: 048
  21. ZYRTEC [Concomitant]
     Active Substance: CETIRIZINE HYDROCHLORIDE
     Route: 065
  22. LACTULOSE. [Concomitant]
     Active Substance: LACTULOSE
     Route: 065

REACTIONS (10)
  - Skin abrasion [Unknown]
  - Constipation [Unknown]
  - Acne [Unknown]
  - Dry skin [Unknown]
  - Chorea [Unknown]
  - Pruritus [Unknown]
  - Pyrexia [Unknown]
  - Respiratory tract infection [Unknown]
  - B-lymphocyte count decreased [Unknown]
  - Enuresis [Unknown]
